FAERS Safety Report 13542009 (Version 3)
Quarter: 2017Q2

REPORT INFORMATION
  Report Type: Spontaneous
  Country: KR (occurrence: KR)
  Receive Date: 20170512
  Receipt Date: 20170519
  Transmission Date: 20170830
  Serious: No
  Sender: FDA-Public Use
  Company Number: KR-009507513-1703KOR005735

PATIENT
  Age: 42 Year
  Sex: Female
  Weight: 54.3 kg

DRUGS (18)
  1. EMEND (FOSAPREPITANT DIMEGLUMINE) [Suspect]
     Active Substance: FOSAPREPITANT DIMEGLUMINE
     Dosage: 150 MG, ONCE
     Route: 042
     Dates: start: 20161229, end: 20161229
  2. ABNOBAVISCUM [Concomitant]
     Indication: BREAST CANCER
     Dosage: STRENGTH 20MG/ML, 20 MG, QD, CYCLE 4
     Route: 058
     Dates: start: 20170208, end: 20170208
  3. NEUTROGIN [Concomitant]
     Active Substance: LENOGRASTIM
     Dosage: 250 MICROGRAM, ONCE
     Route: 058
     Dates: start: 20170213, end: 20170213
  4. EMEND (FOSAPREPITANT DIMEGLUMINE) [Suspect]
     Active Substance: FOSAPREPITANT DIMEGLUMINE
     Dosage: 150 MG, ONCE
     Route: 042
     Dates: start: 20170119, end: 20170119
  5. ENDOXAN [Concomitant]
     Active Substance: CYCLOPHOSPHAMIDE
     Indication: BREAST CANCER
     Dosage: 820 MG, ONCE, CYCLE 4
     Route: 042
     Dates: start: 20170209, end: 20170209
  6. NEUTROGIN [Concomitant]
     Active Substance: LENOGRASTIM
     Dosage: 250 MICROGRAM, ONCE
     Route: 058
     Dates: start: 20170221, end: 20170221
  7. ABNOBAVISCUM [Concomitant]
     Dosage: STRENGTH 20MG/ML, 20 MG, QD, CYCLE 4
     Route: 058
     Dates: start: 20170222, end: 20170222
  8. DEXAMETHASONE. [Concomitant]
     Active Substance: DEXAMETHASONE
     Indication: PROPHYLAXIS OF NAUSEA AND VOMITING
     Dosage: 4 MG, ONCE
     Route: 048
     Dates: start: 20170209, end: 20170209
  9. CARDIOXANE [Concomitant]
     Active Substance: DEXRAZOXANE HYDROCHLORIDE
     Indication: PROPHYLAXIS
     Dosage: 1 G, ONCE
     Route: 042
     Dates: start: 20170209, end: 20170209
  10. NEUTROGIN [Concomitant]
     Active Substance: LENOGRASTIM
     Indication: ANAEMIA PROPHYLAXIS
     Dosage: 250 MICROGRAM, ONCE
     Route: 058
     Dates: start: 20170208, end: 20170208
  11. ABNOBAVISCUM [Concomitant]
     Dosage: STRENGTH 20MG/ML, 20 MG, QD, CYCLE 4
     Route: 058
     Dates: start: 20170213, end: 20170213
  12. GODEX CAP [Concomitant]
     Indication: PROPHYLAXIS
     Dosage: 1 CAPSULE, TID
     Route: 048
     Dates: start: 20170208, end: 20170213
  13. ABNOBAVISCUM [Concomitant]
     Dosage: STRENGTH 20MG/ML, 20 MG, QD, CYCLE 4
     Route: 058
     Dates: start: 20170210, end: 20170210
  14. ADRIAMYCIN [Concomitant]
     Active Substance: DOXORUBICIN HYDROCHLORIDE
     Indication: BREAST CANCER
     Dosage: 82 MG, ONCE, CYCLE 4
     Route: 042
     Dates: start: 20170209, end: 20170209
  15. SANCUSO [Concomitant]
     Active Substance: GRANISETRON
     Indication: ANTIEMETIC SUPPORTIVE CARE
     Dosage: 34.3 MG, ONCE; STRENGTH :80.2X66.6 MM2
     Route: 062
     Dates: start: 20160208, end: 20160208
  16. EMEND (FOSAPREPITANT DIMEGLUMINE) [Suspect]
     Active Substance: FOSAPREPITANT DIMEGLUMINE
     Dosage: 150 MG, ONCE
     Route: 042
     Dates: start: 20170209, end: 20170209
  17. NASEA [Concomitant]
     Active Substance: RAMOSETRON HYDROCHLORIDE
     Indication: PROPHYLAXIS OF NAUSEA AND VOMITING
     Dosage: 0.3 MG, ONCE
     Route: 042
     Dates: start: 20170209, end: 20170209
  18. EMEND (FOSAPREPITANT DIMEGLUMINE) [Suspect]
     Active Substance: FOSAPREPITANT DIMEGLUMINE
     Indication: PROPHYLAXIS OF NAUSEA AND VOMITING
     Dosage: 150 MG, ONCE
     Route: 042
     Dates: start: 20161208, end: 20161208

REACTIONS (1)
  - Injection site oedema [Recovered/Resolved]

NARRATIVE: CASE EVENT DATE: 20170216
